FAERS Safety Report 6466666-X (Version None)
Quarter: 2009Q4

REPORT INFORMATION
  Report Type: 
  Country: None (occurrence: None)
  Receive Date: 20091127
  Receipt Date: 20091110
  Transmission Date: 20100525
  Serious: Yes (Hospitalization, Other)
  Sender: FDA-Public Use
  Company Number: 1-20696929

PATIENT
  Sex: Female

DRUGS (1)
  1. WARFARIN SODIUM [Suspect]
     Indication: ANTIPHOSPHOLIPID SYNDROME
     Dosage: 3 MG DAILY, ORAL
     Route: 048
     Dates: end: 20091103

REACTIONS (1)
  - INTERNATIONAL NORMALISED RATIO INCREASED [None]
